FAERS Safety Report 6035816-1 (Version None)
Quarter: 2009Q1

REPORT INFORMATION
  Report Type: 
  Country: None (occurrence: None)
  Receive Date: 20090113
  Receipt Date: 20090108
  Transmission Date: 20090719
  Serious: Yes (Other)
  Sender: FDA-Public Use
  Company Number: ES-ABBOTT-08P-144-0492277-00

PATIENT
  Sex: Male

DRUGS (6)
  1. DEPAKINE ORAL SOLUTION [Suspect]
     Indication: DRUG USE FOR UNKNOWN INDICATION
     Route: 048
     Dates: start: 20070101, end: 20081001
  2. IBUPROFEN TABLETS [Interacting]
     Indication: DRUG USE FOR UNKNOWN INDICATION
     Dates: start: 20080818, end: 20080920
  3. DOLQUINE [Interacting]
     Indication: DRUG USE FOR UNKNOWN INDICATION
     Route: 048
     Dates: start: 20070101, end: 20081001
  4. MODECATE [Interacting]
     Indication: DRUG USE FOR UNKNOWN INDICATION
     Route: 030
     Dates: start: 20070101, end: 20081001
  5. ZITHROMAX [Interacting]
     Indication: DRUG USE FOR UNKNOWN INDICATION
     Route: 048
     Dates: start: 20080918, end: 20080920
  6. ZYPREXA [Interacting]
     Indication: DRUG USE FOR UNKNOWN INDICATION
     Dates: start: 20070101, end: 20081001

REACTIONS (2)
  - DRUG INTERACTION [None]
  - THROMBOCYTOPENIA [None]
